FAERS Safety Report 23795100 (Version 1)
Quarter: 2024Q2

REPORT INFORMATION
  Report Type: Spontaneous
  Country: US (occurrence: US)
  Receive Date: 20240429
  Receipt Date: 20240429
  Transmission Date: 20240715
  Serious: Yes (Other)
  Sender: FDA-Public Use
  Company Number: US-SPECGX-T202400985

PATIENT
  Age: 5 Year
  Sex: Female

DRUGS (3)
  1. POSACONAZOLE [Suspect]
     Active Substance: POSACONAZOLE
     Indication: Mucormycosis
     Dosage: UNK
     Route: 065
  2. POSACONAZOLE [Suspect]
     Active Substance: POSACONAZOLE
     Indication: Antifungal prophylaxis
  3. VINCRISTINE [Suspect]
     Active Substance: VINCRISTINE
     Indication: Product used for unknown indication
     Dosage: UNK
     Route: 065

REACTIONS (8)
  - Functional endoscopic sinus surgery [Unknown]
  - Debridement [Unknown]
  - Mucormycosis [Unknown]
  - Sinusitis fungal [Unknown]
  - Cellulitis [Recovering/Resolving]
  - Neuralgia [Unknown]
  - Product use in unapproved indication [Unknown]
  - Product use issue [Unknown]
